FAERS Safety Report 7419265-7 (Version None)
Quarter: 2011Q2

REPORT INFORMATION
  Report Type: 
  Country: None (occurrence: None)
  Receive Date: 20110415
  Receipt Date: 20110406
  Transmission Date: 20111010
  Serious: Yes (Hospitalization)
  Sender: FDA-Public Use
  Company Number: US-ASTRAZENECA-2011SE19915

PATIENT
  Age: 74 Year
  Sex: Female

DRUGS (8)
  1. CRESTOR [Suspect]
     Route: 048
     Dates: start: 20101201
  2. CRESTOR [Suspect]
     Route: 048
  3. ASPIRIN [Concomitant]
  4. ZOCOR [Concomitant]
  5. CRESTOR [Suspect]
     Indication: BLOOD CHOLESTEROL INCREASED
     Route: 048
     Dates: start: 20040101
  6. PLAVIX [Concomitant]
  7. CO-Q 10 [Concomitant]
  8. ENALAPRIL [Concomitant]

REACTIONS (6)
  - WRONG TECHNIQUE IN DRUG USAGE PROCESS [None]
  - MUSCULAR WEAKNESS [None]
  - MYALGIA [None]
  - MUSCLE SPASMS [None]
  - ABDOMINAL PAIN [None]
  - CARDIOVASCULAR DISORDER [None]
